FAERS Safety Report 16046740 (Version 9)
Quarter: 2020Q4

REPORT INFORMATION
  Report Type: Spontaneous
  Country: US (occurrence: US)
  Receive Date: 20190307
  Receipt Date: 20201223
  Transmission Date: 20210113
  Serious: No
  Sender: FDA-Public Use
  Company Number: US-PFIZER INC-2018262475

PATIENT
  Age: 8 Year
  Sex: Female
  Weight: 18.6 kg

DRUGS (5)
  1. GENOTROPIN [Suspect]
     Active Substance: SOMATROPIN
     Indication: BODY HEIGHT BELOW NORMAL
     Dosage: 0.8 MG SUBCUTANEOUS INJECTION ONCE DAILY, 7 DAYS WEEK
     Route: 058
     Dates: start: 201803
  2. GENOTROPIN [Suspect]
     Active Substance: SOMATROPIN
     Indication: BLOOD GROWTH HORMONE DECREASED
     Dosage: 1 MG, DAILY (1 MG BY INJECTION DAILY )
     Route: 058
     Dates: start: 2018
  3. GENOTROPIN [Suspect]
     Active Substance: SOMATROPIN
     Indication: GROWTH HORMONE DEFICIENCY
     Dosage: 0.9 MG, 1X/DAY [EVERY NIGHT OF THE WEEK]
     Route: 058
     Dates: start: 201804
  4. GENOTROPIN [Suspect]
     Active Substance: SOMATROPIN
     Indication: GROWTH HORMONE DEFICIENCY
  5. GENOTROPIN [Suspect]
     Active Substance: SOMATROPIN
     Indication: DIHYDROPYRIMIDINE DEHYDROGENASE DEFICIENCY
     Dosage: 1 MG, 1X/DAY (1MG INJECTION ONCE A DAY)

REACTIONS (2)
  - Injection site extravasation [Unknown]
  - Device use error [Unknown]

NARRATIVE: CASE EVENT DATE: 201804
